FAERS Safety Report 16067355 (Version 2)
Quarter: 2019Q1

REPORT INFORMATION
  Report Type: Spontaneous
  Country: JP (occurrence: JP)
  Receive Date: 20190313
  Receipt Date: 20190327
  Transmission Date: 20190418
  Serious: Yes (Other)
  Sender: FDA-Public Use
  Company Number: JP-EISAI MEDICAL RESEARCH-EC-2019-053173

PATIENT
  Age: 74 Year
  Sex: Male
  Weight: 63 kg

DRUGS (2)
  1. LENVIMA [Suspect]
     Active Substance: LENVATINIB
     Route: 048
     Dates: start: 20190107
  2. LENVIMA [Suspect]
     Active Substance: LENVATINIB
     Indication: HEPATOCELLULAR CARCINOMA
     Route: 048
     Dates: start: 20181203, end: 20181204

REACTIONS (4)
  - Intracranial aneurysm [Unknown]
  - Palmar-plantar erythrodysaesthesia syndrome [Unknown]
  - Zinc deficiency [Unknown]
  - Tongue oedema [Unknown]

NARRATIVE: CASE EVENT DATE: 20190204
